FAERS Safety Report 17909218 (Version 1)
Quarter: 2020Q2

REPORT INFORMATION
  Report Type: Report from Study
  Country: None (occurrence: US)
  Receive Date: 20200618
  Receipt Date: 20200618
  Transmission Date: 20200714
  Serious: Yes (Hospitalization, Other)
  Sender: FDA-Public Use
  Company Number: US-ABBVIE-19K-163-3005718-00

PATIENT
  Age: 19 Year
  Sex: Male
  Weight: 90.8 kg

DRUGS (2)
  1. HUMIRA [Suspect]
     Active Substance: ADALIMUMAB
     Indication: COLITIS ULCERATIVE
     Route: 058
  2. HUMIRA [Suspect]
     Active Substance: ADALIMUMAB
     Indication: COLITIS ULCERATIVE
     Route: 058
     Dates: start: 202001

REACTIONS (5)
  - Device issue [Unknown]
  - Skin infection [Not Recovered/Not Resolved]
  - Cyst rupture [Not Recovered/Not Resolved]
  - Osteomyelitis [Recovered/Resolved]
  - Osteomyelitis [Unknown]

NARRATIVE: CASE EVENT DATE: 201906
